FAERS Safety Report 4280411-8 (Version None)
Quarter: 2004Q1

REPORT INFORMATION
  Report Type: 
  Country: None (occurrence: None)
  Receive Date: 20040128
  Receipt Date: 20040128
  Transmission Date: 20041129
  Serious: Yes (Hospitalization)
  Sender: FDA-Public Use
  Company Number: None

PATIENT
  Age: 67 Year
  Sex: Male
  Weight: 102.9665 kg

DRUGS (17)
  1. CARBOPLATIN [Suspect]
     Indication: NON-SMALL CELL LUNG CANCER
     Dosage: 700 MG IV
     Route: 042
     Dates: start: 20021023
  2. CARBOPLATIN [Suspect]
     Indication: NON-SMALL CELL LUNG CANCER
     Dosage: 700 MG IV
     Route: 042
     Dates: start: 20031112
  3. CARBOPLATIN [Suspect]
     Indication: NON-SMALL CELL LUNG CANCER
     Dosage: 700 MG IV
     Route: 042
     Dates: start: 20031203
  4. PRILOSEC [Concomitant]
  5. LIPITOR [Concomitant]
  6. ZOLOFT [Concomitant]
  7. CELEBREX [Concomitant]
  8. FLOMAX [Concomitant]
  9. LORTAB [Concomitant]
  10. ZOFRAN [Concomitant]
  11. PHENERGAN HCL [Concomitant]
  12. GEMZAR [Suspect]
     Indication: NON-SMALL CELL LUNG CANCER
     Dosage: 2200 MG IV
     Route: 042
     Dates: start: 20031023
  13. GEMZAR [Suspect]
     Indication: NON-SMALL CELL LUNG CANCER
     Dosage: 2200 MG IV
     Route: 042
     Dates: start: 20031029
  14. GEMZAR [Suspect]
     Indication: NON-SMALL CELL LUNG CANCER
     Dosage: 2200 MG IV
     Route: 042
     Dates: start: 20031112
  15. GEMZAR [Suspect]
     Indication: NON-SMALL CELL LUNG CANCER
     Dosage: 2200 MG IV
     Route: 042
     Dates: start: 20031119
  16. GEMZAR [Suspect]
     Indication: NON-SMALL CELL LUNG CANCER
     Dosage: 2200 MG IV
     Route: 042
     Dates: start: 20031203
  17. GEMZAR [Suspect]
     Indication: NON-SMALL CELL LUNG CANCER
     Dosage: 2200 MG IV
     Route: 042
     Dates: start: 20031210

REACTIONS (2)
  - CLOSTRIDIUM COLITIS [None]
  - DEHYDRATION [None]
